FAERS Safety Report 9182161 (Version 2)
Quarter: 2013Q2

REPORT INFORMATION
  Report Type: Spontaneous
  Country: JP (occurrence: JP)
  Receive Date: 20130322
  Receipt Date: 20130409
  Transmission Date: 20140414
  Serious: Yes (Hospitalization)
  Sender: FDA-Public Use
  Company Number: JP-TEVA-393216USA

PATIENT
  Age: 70 Year
  Sex: 0

DRUGS (11)
  1. TREANDA [Suspect]
     Indication: LYMPHOMA
     Route: 042
     Dates: start: 20120914, end: 20120915
  2. SULFAMETHOXAZOLE AND TRIMETHOPRIM [Suspect]
     Indication: PROPHYLAXIS
     Route: 048
     Dates: start: 20120913, end: 20120923
  3. APREPITANT [Concomitant]
  4. ALLOPURINOL [Concomitant]
  5. LANSOPRAZOLE [Concomitant]
  6. DEXAMETHASONE [Concomitant]
  7. FEXOFENADINE HYDROCHLORIDE [Concomitant]
  8. FUROSEMIDE [Concomitant]
  9. CIPROFLOXACIN HYDROCHLORIDE [Concomitant]
  10. SPIRONOLACTONE [Concomitant]
  11. CYANOCOBALAMIN [Concomitant]

REACTIONS (2)
  - Thrombocytopenia [Recovering/Resolving]
  - Pancytopenia [Recovering/Resolving]
